FAERS Safety Report 19632008 (Version 1)
Quarter: 2021Q3

REPORT INFORMATION
  Report Type: Spontaneous
  Country: US (occurrence: US)
  Receive Date: 20210728
  Receipt Date: 20210728
  Transmission Date: 20211014
  Serious: No
  Sender: FDA-Public Use
  Company Number: US-ROCHE-2616882

PATIENT
  Age: 85 Year
  Sex: Female

DRUGS (7)
  1. XELODA [Suspect]
     Active Substance: CAPECITABINE
     Indication: HEPATOCELLULAR CARCINOMA
     Route: 048
     Dates: start: 20200513
  2. XELODA [Suspect]
     Active Substance: CAPECITABINE
     Route: 048
     Dates: start: 202005
  3. XELODA [Suspect]
     Active Substance: CAPECITABINE
     Indication: HEPATIC CANCER
     Route: 048
     Dates: start: 20200517
  4. XELODA [Suspect]
     Active Substance: CAPECITABINE
     Route: 048
     Dates: start: 20200729
  5. XELODA [Suspect]
     Active Substance: CAPECITABINE
     Dosage: ONGOING
     Route: 048
     Dates: start: 202005
  6. XELODA [Suspect]
     Active Substance: CAPECITABINE
     Route: 048
     Dates: start: 20200915
  7. XELODA [Suspect]
     Active Substance: CAPECITABINE
     Route: 048
     Dates: start: 202009

REACTIONS (15)
  - Malaise [Unknown]
  - Intentional product use issue [Unknown]
  - Oedema peripheral [Unknown]
  - Headache [Unknown]
  - Lethargy [Unknown]
  - Rash macular [Unknown]
  - Myalgia [Unknown]
  - Peripheral swelling [Unknown]
  - Fatigue [Unknown]
  - Abdominal pain upper [Unknown]
  - Erythema [Unknown]
  - Ocular hyperaemia [Unknown]
  - Off label use [Unknown]
  - Abdominal pain upper [Unknown]
  - Pruritus [Unknown]

NARRATIVE: CASE EVENT DATE: 20200604
